FAERS Safety Report 8440479-1 (Version None)
Quarter: 2012Q2

REPORT INFORMATION
  Report Type: 
  Country: None (occurrence: None)
  Receive Date: 20120615
  Receipt Date: 20120605
  Transmission Date: 20120825
  Serious: Yes (Hospitalization, Disabling)
  Sender: FDA-Public Use
  Company Number: JP-GLAXOSMITHKLINE-B0762475A

PATIENT
  Sex: Male

DRUGS (5)
  1. LAMIVUDINE (EPIVIR HBV) [Suspect]
     Indication: HEPATITIS B
     Dosage: 100MG PER DAY
     Route: 048
     Dates: start: 20011001, end: 20111101
  2. HEPSERA [Suspect]
     Indication: HEPATITIS B
     Dosage: 10MG PER DAY
     Route: 048
     Dates: start: 20040901, end: 20111101
  3. LOSARTAN POTASSIUM [Concomitant]
     Dosage: 50MG PER DAY
     Route: 048
  4. ETODOLAC [Concomitant]
     Dosage: 400MG PER DAY
     Route: 048
  5. ANTAGOSTIN [Concomitant]
     Dosage: 2IUAX PER DAY
     Route: 048

REACTIONS (19)
  - BLOOD URIC ACID DECREASED [None]
  - NEPHROSCLEROSIS [None]
  - BLOOD CREATININE INCREASED [None]
  - OSTEOMALACIA [None]
  - FANCONI SYNDROME [None]
  - AMINOACIDURIA [None]
  - METABOLIC ACIDOSIS [None]
  - FIBULA FRACTURE [None]
  - URINE CALCIUM INCREASED [None]
  - URINE PHOSPHORUS INCREASED [None]
  - PAIN [None]
  - TIBIA FRACTURE [None]
  - BLOOD PHOSPHORUS DECREASED [None]
  - LIMB DISCOMFORT [None]
  - ARTHRALGIA [None]
  - RIB FRACTURE [None]
  - URINE URIC ACID INCREASED [None]
  - RENAL IMPAIRMENT [None]
  - GLUCOSE URINE PRESENT [None]
